FAERS Safety Report 9895012 (Version 2)
Quarter: 2014Q1

REPORT INFORMATION
  Report Type: Spontaneous
  Country: US (occurrence: US)
  Receive Date: 20140213
  Receipt Date: 20140213
  Transmission Date: 20141002
  Serious: No
  Sender: FDA-Public Use
  Company Number: US-BRISTOL-MYERS SQUIBB COMPANY-17331471

PATIENT
  Age: 62 Year
  Sex: Female

DRUGS (1)
  1. ABATACEPT SUBQ INJECTION 125MG/ML [Suspect]
     Dosage: LAST INJECTION ON 13JAN2013.
     Route: 058

REACTIONS (4)
  - Gait disturbance [Unknown]
  - Pain in extremity [Unknown]
  - Drug ineffective [Unknown]
  - Malaise [Unknown]
